FAERS Safety Report 5892363-5 (Version None)
Quarter: 2008Q3

REPORT INFORMATION
  Report Type: 
  Country: None (occurrence: None)
  Receive Date: 20080919
  Receipt Date: 20080919
  Transmission Date: 20090109
  Serious: Yes (Life-Threatening, Hospitalization)
  Sender: FDA-Public Use
  Company Number: None

PATIENT
  Sex: Female
  Weight: 113.3993 kg

DRUGS (1)
  1. MACROBID [Suspect]
     Indication: CYSTITIS
     Dosage: 1CAPSULE DAILY

REACTIONS (3)
  - DYSPNOEA [None]
  - HYPERVENTILATION [None]
  - SIMILAR REACTION ON PREVIOUS EXPOSURE TO DRUG [None]
